FAERS Safety Report 4816950-8 (Version None)
Quarter: 2005Q3

REPORT INFORMATION
  Report Type: 
  Country: None (occurrence: None)
  Receive Date: 20050929
  Receipt Date: 20050628
  Transmission Date: 20060218
  Serious: No
  Sender: FDA-Public Use
  Company Number: 05P-163-0303474

PATIENT
  Age: 55 Year
  Sex: Female
  Weight: 53.5244 kg

DRUGS (7)
  1. HUMIRA [Suspect]
     Indication: RHEUMATOID ARTHRITIS
     Dosage: 40 MG, 1 IN 2 WK, SUBCUTANEOUS
     Route: 058
     Dates: start: 20050305, end: 20050614
  2. METHOTREXATE [Concomitant]
  3. DEXAMETHASONE [Concomitant]
  4. FLUDROCORTISONE ACETATE [Concomitant]
  5. LEVOTHYROXINE SODIUM [Concomitant]
  6. ATENOLOL [Concomitant]
  7. PHENOBARBITAL [Concomitant]

REACTIONS (6)
  - CARDIAC FLUTTER [None]
  - NASAL ULCER [None]
  - PURULENT DISCHARGE [None]
  - RHINALGIA [None]
  - SECRETION DISCHARGE [None]
  - STAPHYLOCOCCAL INFECTION [None]
